FAERS Safety Report 20677654 (Version 3)
Quarter: 2022Q3

REPORT INFORMATION
  Report Type: Report from Study
  Country: US (occurrence: US)
  Receive Date: 20220406
  Receipt Date: 20220707
  Transmission Date: 20221026
  Serious: Yes (Other)
  Sender: FDA-Public Use
  Company Number: US-Ipsen Biopharmaceuticals, Inc.-2022-09591

PATIENT
  Age: 65 Year
  Sex: Female

DRUGS (4)
  1. SOMATULINE DEPOT [Suspect]
     Active Substance: LANREOTIDE ACETATE
     Indication: Acromegaly
     Dosage: 120 MG/0.5 ML
     Route: 058
     Dates: start: 2017
  2. SOMATULINE DEPOT [Suspect]
     Active Substance: LANREOTIDE ACETATE
     Indication: Neuroendocrine tumour
  3. SOMATULINE DEPOT [Suspect]
     Active Substance: LANREOTIDE ACETATE
     Indication: Carcinoid syndrome
  4. WEST WHEAT GRASS [Suspect]
     Active Substance: PASCOPYRUM SMITHII POLLEN
     Indication: Blood cholesterol increased
     Route: 065

REACTIONS (7)
  - Neoplasm [Unknown]
  - Glycosylated haemoglobin increased [Recovering/Resolving]
  - Hypertension [Unknown]
  - Blood cholesterol increased [Unknown]
  - Arthritis [Unknown]
  - Pollakiuria [Unknown]
  - Blood glucose abnormal [Unknown]

NARRATIVE: CASE EVENT DATE: 20220101
